FAERS Safety Report 5217028-4 (Version None)
Quarter: 2007Q1

REPORT INFORMATION
  Report Type: 
  Country: None (occurrence: None)
  Receive Date: 20070119
  Receipt Date: 20070103
  Transmission Date: 20070707
  Serious: Yes (Hospitalization)
  Sender: FDA-Public Use
  Company Number: URSO-2006-054

PATIENT
  Age: 74 Year
  Sex: Male

DRUGS (4)
  1. URSODIOL [Suspect]
     Indication: CHOLANGITIS SCLEROSING
     Dosage: 500MG BID PO
     Route: 048
     Dates: start: 20060918, end: 20061005
  2. INEXIUM (ESOMEPRAZOLE) [Concomitant]
  3. MIANSERIN [Concomitant]
  4. CLONAZEPAM [Concomitant]

REACTIONS (1)
  - DIARRHOEA HAEMORRHAGIC [None]
